FAERS Safety Report 5089743-7 (Version None)
Quarter: 2006Q3

REPORT INFORMATION
  Report Type: 
  Country: None (occurrence: None)
  Receive Date: 20060828
  Receipt Date: 20060821
  Transmission Date: 20061208
  Serious: Yes (Other)
  Sender: FDA-Public Use
  Company Number: IT-BRISTOL-MYERS SQUIBB COMPANY-13482864

PATIENT
  Age: 73 Year
  Sex: Male

DRUGS (2)
  1. SINEMET CR [Suspect]
     Indication: PARKINSON'S DISEASE
     Route: 048
     Dates: start: 20060804, end: 20060806
  2. ESCITALOPRAM [Concomitant]

REACTIONS (3)
  - FLUSHING [None]
  - SENSORY DISTURBANCE [None]
  - TREMOR [None]
